FAERS Safety Report 19426347 (Version 2)
Quarter: 2021Q3

REPORT INFORMATION
  Report Type: Spontaneous
  Country: DE (occurrence: DE)
  Receive Date: 20210616
  Receipt Date: 20210708
  Transmission Date: 20211014
  Serious: Yes (Other)
  Sender: FDA-Public Use
  Company Number: NVSC2021DE134503

PATIENT
  Age: 52 Year
  Sex: Male

DRUGS (13)
  1. METHOTREXATE. [Suspect]
     Active Substance: METHOTREXATE
     Dosage: 2.5 MG ON DAY 3, 4 AND 5 (CYCLE 4)
     Route: 042
  2. METHOTREXATE. [Suspect]
     Active Substance: METHOTREXATE
     Dosage: CYCLE 4 AND 6 (1 CYCLE OF 3 WEEKS); DAY3?5
     Route: 065
  3. ARA?C [Suspect]
     Active Substance: CYTARABINE
     Dosage: 10 MG (CYCLE 5) DAY 5
     Route: 016
  4. METHOTREXATE. [Suspect]
     Active Substance: METHOTREXATE
     Dosage: 4000 MG/M2 (CYCLE 5) ON DAY 1
     Route: 042
  5. PREDNISOLONE. [Concomitant]
     Active Substance: PREDNISOLONE
     Dosage: CYCLE 5 (1 CYCLE OF 2 WEEKS); DAY 2?4, ROUTE: {INTRACEREBROVENTRICULAR}
     Route: 050
  6. PREDNISOLONE. [Concomitant]
     Active Substance: PREDNISOLONE
     Indication: CENTRAL NERVOUS SYSTEM LYMPHOMA
     Dosage: CYCLE 4 AND 6 (1 CYCLE OF 3 WEEKS); DAY3?5, ROUTE: {INTRACEREBROVENTRICULAR}
     Route: 050
  7. ARA?C [Suspect]
     Active Substance: CYTARABINE
     Dosage: 10 MG (CYCLE 4 PLUS 6) DAY 6
     Route: 016
  8. IFOSFAMIDE. [Concomitant]
     Active Substance: IFOSFAMIDE
     Indication: CENTRAL NERVOUS SYSTEM LYMPHOMA
     Dosage: CYCLE 5 (1 CYCLE OF 2 WEEKS); DAY2?5
     Route: 042
  9. ARA?C [Suspect]
     Active Substance: CYTARABINE
     Indication: CENTRAL NERVOUS SYSTEM LYMPHOMA
     Dosage: 3000 MG/M2, (CYCLE2 PLUS 6) DAY 1 AND 2
     Route: 042
  10. IFOSFAMIDE. [Concomitant]
     Active Substance: IFOSFAMIDE
     Dosage: CYCLE 1?3 (1 CYCLE OF 2 WEEKS); DAY 2?5
     Route: 042
  11. METHOTREXATE. [Suspect]
     Active Substance: METHOTREXATE
     Indication: CENTRAL NERVOUS SYSTEM LYMPHOMA
     Dosage: 4000 MG/M2 ON DAY 1  (CYCLE1?3)
     Route: 042
  12. METHOTREXATE. [Suspect]
     Active Substance: METHOTREXATE
     Dosage: 2.5 MG ON ( CYCLE 5) DAY 2, 3 AND 4
     Route: 042
  13. RITUXIMAB. [Concomitant]
     Active Substance: RITUXIMAB
     Indication: CENTRAL NERVOUS SYSTEM LYMPHOMA
     Dosage: CYCLE 1?3 (1 CYCLE OF 2 WEEKS); DAY 0?1
     Route: 042

REACTIONS (2)
  - Product use in unapproved indication [Unknown]
  - Propionibacterium infection [Unknown]
